FAERS Safety Report 7381679-1 (Version None)
Quarter: 2011Q1

REPORT INFORMATION
  Report Type: 
  Country: None (occurrence: None)
  Receive Date: 20110329
  Receipt Date: 20101014
  Transmission Date: 20110831
  Serious: Yes (Hospitalization)
  Sender: FDA-Public Use
  Company Number: US-BAYER-200935568NA

PATIENT
  Sex: Female
  Weight: 83 kg

DRUGS (9)
  1. YAZ [Suspect]
     Indication: ACNE
  2. YASMIN [Suspect]
     Indication: PRODUCT USED FOR UNKNOWN INDICATION
  3. ASTELIN [Concomitant]
     Dosage: 137 ?G, UNK
     Route: 055
  4. ATENOLOL [Concomitant]
     Dosage: 40 MG, UNK
     Route: 048
  5. SYNTHROID [Concomitant]
     Dosage: 100 ?G, UNK
     Route: 048
  6. HYDROCHLOROTHIAZIDE [Concomitant]
     Dosage: 25 MG, UNK
     Route: 048
  7. CHANTIX [Concomitant]
     Indication: EX-TOBACCO USER
  8. AMLODIPINE BESYLATE [Concomitant]
     Dosage: 5 MG, UNK
     Route: 048
  9. YAZ [Suspect]
     Indication: PREMENSTRUAL SYNDROME
     Route: 048
     Dates: start: 20080501, end: 20081015

REACTIONS (2)
  - DEEP VEIN THROMBOSIS [None]
  - THROMBOSIS [None]
